FAERS Safety Report 6568847-3 (Version None)
Quarter: 2010Q1

REPORT INFORMATION
  Report Type: 
  Country: None (occurrence: None)
  Receive Date: 20100203
  Receipt Date: 20100127
  Transmission Date: 20100710
  Serious: Yes (Death, Hospitalization)
  Sender: FDA-Public Use
  Company Number: CA-JNJFOC-20091206135

PATIENT
  Sex: Female
  Weight: 63.1 kg

DRUGS (18)
  1. GOLIMUMAB [Suspect]
     Indication: RHEUMATOID ARTHRITIS
     Route: 058
  2. GOLIMUMAB [Suspect]
     Route: 058
  3. PLACEBO [Suspect]
     Indication: RHEUMATOID ARTHRITIS
     Route: 058
  4. PLACEBO [Suspect]
     Route: 058
  5. PLACEBO [Suspect]
     Route: 058
  6. PLACEBO [Suspect]
     Route: 058
  7. PLAQUENIL [Concomitant]
     Route: 048
  8. FOLIC ACID [Concomitant]
     Route: 048
  9. METHOTREXATE [Concomitant]
     Route: 058
  10. ZOVIRAX [Concomitant]
     Route: 061
  11. VITAMIN B-12 [Concomitant]
     Route: 059
  12. TYLENOL COLD DAY TIME EXTRA STRENGTH [Concomitant]
     Route: 048
  13. TYLENOL (CAPLET) [Concomitant]
  14. FOLIC ACID [Concomitant]
  15. TYLENOL SINUS [Concomitant]
  16. MOBICOX [Concomitant]
     Route: 048
  17. MULTI-VITAMINS [Concomitant]
     Route: 048
  18. BENYLIN NOS [Concomitant]
     Route: 048

REACTIONS (2)
  - PNEUMONITIS [None]
  - VIRAL INFECTION [None]
